FAERS Safety Report 15472905 (Version 2)
Quarter: 2019Q2

REPORT INFORMATION
  Report Type: Spontaneous
  Country: US (occurrence: US)
  Receive Date: 20181008
  Receipt Date: 20190516
  Transmission Date: 20190711
  Serious: Yes (Other)
  Sender: FDA-Public Use
  Company Number: US-PFIZER INC-2018400131

PATIENT
  Age: 60 Year
  Sex: Female

DRUGS (1)
  1. LYRICA [Suspect]
     Active Substance: PREGABALIN
     Dosage: 75 MG, 2X/DAY

REACTIONS (9)
  - Traumatic lung injury [Unknown]
  - Intervertebral disc protrusion [Unknown]
  - Tremor [Unknown]
  - Fall [Unknown]
  - Hemiplegia [Unknown]
  - Sepsis [Unknown]
  - Malaise [Unknown]
  - Hypoaesthesia [Unknown]
  - Rib fracture [Unknown]
